FAERS Safety Report 10489656 (Version 1)
Quarter: 2014Q4

REPORT INFORMATION
  Report Type: Spontaneous
  Country: GB (occurrence: GB)
  Receive Date: 20141002
  Receipt Date: 20141002
  Transmission Date: 20150528
  Serious: Yes (Hospitalization)
  Sender: FDA-Public Use
  Company Number: GB-AMGEN-GBRSP2014074531

PATIENT
  Age: 87 Year
  Sex: Female
  Weight: 67.2 kg

DRUGS (8)
  1. PROLIA [Suspect]
     Active Substance: DENOSUMAB
     Indication: RENAL OSTEODYSTROPHY
     Dosage: 8 MG, UNK
     Route: 058
     Dates: start: 20140708, end: 20140709
  2. RANITIDINE [Concomitant]
     Active Substance: RANITIDINE\RANITIDINE HYDROCHLORIDE
  3. FULTIUM [Concomitant]
  4. TOLTERODINE [Concomitant]
     Active Substance: TOLTERODINE
  5. COCODAMOL [Concomitant]
     Active Substance: ACETAMINOPHEN\CODEINE PHOSPHATE
  6. MIRTAZAPINE. [Concomitant]
     Active Substance: MIRTAZAPINE
  7. ALFACALCIDOL [Concomitant]
     Active Substance: ALFACALCIDOL
  8. DONEPEZIL [Concomitant]
     Active Substance: DONEPEZIL

REACTIONS (3)
  - Tibia fracture [Unknown]
  - Hypocalcaemia [Not Recovered/Not Resolved]
  - Arthralgia [Unknown]
